FAERS Safety Report 6934437-3 (Version None)
Quarter: 2010Q3

REPORT INFORMATION
  Report Type: 
  Country: None (occurrence: None)
  Receive Date: 20100820
  Receipt Date: 20100810
  Transmission Date: 20110219
  Serious: Yes (Other)
  Sender: FDA-Public Use
  Company Number: B0670510A

PATIENT
  Age: 9 Year
  Sex: Male

DRUGS (3)
  1. HEPSERA [Suspect]
     Route: 065
  2. ZEFFIX [Suspect]
     Dosage: 100MG PER DAY
     Route: 065
  3. ZEFFIX [Suspect]
     Dosage: 40MG PER DAY
     Route: 065

REACTIONS (1)
  - DRUG INEFFECTIVE [None]
